FAERS Safety Report 8340399 (Version 3)
Quarter: 2013Q2

REPORT INFORMATION
  Report Type: Spontaneous
  Country: ZA (occurrence: ZA)
  Receive Date: 20120117
  Receipt Date: 20130516
  Transmission Date: 20140414
  Serious: Yes (Other)
  Sender: FDA-Public Use
  Company Number: PHHY2012ZA002898

PATIENT
  Age: 67 Year
  Sex: Male
  Weight: 118 kg

DRUGS (2)
  1. CO-DIOVAN [Suspect]
     Indication: HYPERTENSION
     Dosage: 1 DF, UNK (160 MG VALS AND 12.5 MG HYDRO)
     Dates: start: 2004
  2. WARFARIN [Concomitant]
     Dosage: UNK

REACTIONS (2)
  - Diabetes mellitus [Unknown]
  - Blood pressure increased [Unknown]
